FAERS Safety Report 23525707 (Version 1)
Quarter: 2024Q1

REPORT INFORMATION
  Report Type: Report from Study
  Country: NL (occurrence: NL)
  Receive Date: 20240215
  Receipt Date: 20240215
  Transmission Date: 20240410
  Serious: Yes (Death)
  Sender: FDA-Public Use
  Company Number: NL-ABBVIE-5640871

PATIENT
  Age: 80 Year
  Sex: Male

DRUGS (4)
  1. CARBIDOPA\LEVODOPA [Suspect]
     Active Substance: CARBIDOPA\LEVODOPA
     Indication: Parkinson^s disease
     Dosage: CD:1.3ML/H?START DATE : FEB 2024?DURATION TEXT: REMAINS AT 24 HOURS
     Route: 050
     Dates: end: 20240212
  2. CARBIDOPA\LEVODOPA [Suspect]
     Active Substance: CARBIDOPA\LEVODOPA
     Route: 050
     Dates: start: 20220124
  3. CARBIDOPA\LEVODOPA [Suspect]
     Active Substance: CARBIDOPA\LEVODOPA
     Dosage: MD:3.0ML; CD:3.1ML/H; ED:2.0ML?STOP DATE : FEB 2024?DURATION TEXT: REMAINS AT 16 HOURS
     Route: 050
     Dates: start: 20240207
  4. CARBIDOPA\LEVODOPA [Suspect]
     Active Substance: CARBIDOPA\LEVODOPA
     Dosage: MD:8.0ML; CD:3.1ML/H; ED:2.0ML
     Route: 050
     Dates: start: 20231023, end: 20240207

REACTIONS (1)
  - Death [Fatal]

NARRATIVE: CASE EVENT DATE: 20240212
